FAERS Safety Report 9648045 (Version 1)
Quarter: 2013Q4

REPORT INFORMATION
  Report Type: Spontaneous
  Country: US (occurrence: US)
  Receive Date: 20131028
  Receipt Date: 20131028
  Transmission Date: 20140711
  Serious: No
  Sender: FDA-Public Use
  Company Number: US-PFIZER INC-2013306951

PATIENT
  Age: 49 Year
  Sex: Female

DRUGS (2)
  1. NEURONTIN [Suspect]
     Indication: CONVULSION
     Dosage: UNK
  2. WELLBUTRIN [Suspect]
     Indication: DEPRESSION
     Dosage: UNK

REACTIONS (1)
  - Drug hypersensitivity [Unknown]
